FAERS Safety Report 5089491-3 (Version None)
Quarter: 2006Q3

REPORT INFORMATION
  Report Type: 
  Country: None (occurrence: None)
  Receive Date: 20060822
  Receipt Date: 20060802
  Transmission Date: 20061208
  Serious: Yes (Death, Hospitalization)
  Sender: FDA-Public Use
  Company Number: US200606001212

PATIENT
  Age: 82 Year
  Sex: Female

DRUGS (20)
  1. EVISTA [Suspect]
     Dosage: 60 MG, DAILY (1/D), ORAL
     Route: 048
     Dates: start: 20020901
  2. PREMARIN [Concomitant]
  3. MAVIK [Concomitant]
  4. DAYPRO [Concomitant]
  5. PLAQUENIL [Concomitant]
  6. PROBENECID [Concomitant]
  7. K-DUR 10 [Concomitant]
  8. HYDROCHLOROZIDE (HYDROCHLOROTHIAZIDE) [Concomitant]
  9. CALCIUM (CALCIUM) [Concomitant]
  10. VITAMINS [Concomitant]
  11. MULTIVITAMIN [Concomitant]
  12. VITAMIN B COMPLEX (CALCIUM PANTOTHENATE, NICOTINAMIDE PYRIDOXINE HYDRO [Concomitant]
  13. NIFEDIPINE [Concomitant]
  14. LOMOTIL [Concomitant]
  15. GAS-X (SIMETICONE) [Concomitant]
  16. REGLAN [Concomitant]
  17. METAMUCIL (GLUCOSE MONOHYDRATE, ISPAGHULA HUSK) [Concomitant]
  18. GAVISCON [Concomitant]
  19. ATENOLOL [Concomitant]
  20. DETROL [Concomitant]

REACTIONS (1)
  - COLONIC OBSTRUCTION [None]
